FAERS Safety Report 7381132-5 (Version None)
Quarter: 2011Q1

REPORT INFORMATION
  Report Type: 
  Country: None (occurrence: None)
  Receive Date: 20110329
  Receipt Date: 20110315
  Transmission Date: 20110831
  Serious: No
  Sender: FDA-Public Use
  Company Number: KR-JNJFOC-20110302770

PATIENT
  Age: 8 Year
  Sex: Female
  Weight: 29 kg

DRUGS (4)
  1. CHILDREN'S TYLENOL SUSPENSION [Suspect]
     Indication: PRODUCT USED FOR UNKNOWN INDICATION
     Route: 048
  2. CHILDREN'S TYLENOL SUSPENSION [Suspect]
     Route: 048
  3. CHILDREN'S TYLENOL SUSPENSION [Suspect]
     Indication: PHARYNGITIS
     Route: 048
  4. CHILDREN'S TYLENOL SUSPENSION [Suspect]
     Route: 048

REACTIONS (1)
  - RASH GENERALISED [None]
